FAERS Safety Report 9183671 (Version 1)
Quarter: 2013Q1

REPORT INFORMATION
  Report Type: Spontaneous
  Country: US (occurrence: US)
  Receive Date: 20130322
  Receipt Date: 20130322
  Transmission Date: 20140127
  Serious: No
  Sender: FDA-Public Use
  Company Number: US-BRISTOL-MYERS SQUIBB COMPANY-16578056

PATIENT
  Age: 41 Year
  Sex: Male
  Weight: 117.91 kg

DRUGS (2)
  1. ERBITUX [Suspect]
     Indication: COLON CANCER
     Dosage: 1DF=250-300MG.10-12 WEEKLY TREATMENTS RECEIVED.
     Dates: start: 201202
  2. IRINOTECAN HCL [Suspect]

REACTIONS (5)
  - Diarrhoea [Unknown]
  - Skin fissures [Unknown]
  - Libido decreased [Unknown]
  - Acne [Unknown]
  - Erythema [Unknown]
